FAERS Safety Report 14350433 (Version 1)
Quarter: 2018Q1

REPORT INFORMATION
  Report Type: Spontaneous
  Country: AR (occurrence: AR)
  Receive Date: 20180104
  Receipt Date: 20180104
  Transmission Date: 20180509
  Serious: Yes (Other)
  Sender: FDA-Public Use
  Company Number: AR-PFIZER INC-2018002693

PATIENT
  Age: 42 Year
  Sex: Female

DRUGS (2)
  1. METOTREXATO /00113801/ [Suspect]
     Active Substance: METHOTREXATE
     Dosage: UNK
     Dates: start: 2016
  2. TOFACITINIB CITRATE [Suspect]
     Active Substance: TOFACITINIB CITRATE
     Dosage: 5 MG, 2X/DAY
     Dates: start: 2016

REACTIONS (1)
  - Cervix carcinoma [Unknown]
